FAERS Safety Report 8134472-6 (Version None)
Quarter: 2012Q1

REPORT INFORMATION
  Report Type: 
  Country: None (occurrence: None)
  Receive Date: 20120214
  Receipt Date: 20120214
  Transmission Date: 20120608
  Serious: Yes (Hospitalization)
  Sender: FDA-Public Use
  Company Number: None

PATIENT
  Age: 74 Year
  Sex: Female
  Weight: 39.1 kg

DRUGS (10)
  1. SPIRONOLACTONE [Concomitant]
  2. LOSARTAN POTASSIUM [Concomitant]
  3. OMEPRAZOLE [Concomitant]
  4. CARVEDILOL [Concomitant]
  5. FUROSEMIDE [Concomitant]
  6. MIRTAZAPINE [Concomitant]
  7. PRADAXA [Suspect]
     Indication: ATRIAL FIBRILLATION
     Dosage: 150 MG -1 CAPSULE-
     Route: 048
     Dates: start: 20120202, end: 20120212
  8. DILTIAZEM HCL [Concomitant]
  9. CETIRIZINE [Concomitant]
  10. DIGOXIN [Concomitant]

REACTIONS (2)
  - FALL [None]
  - CEREBRAL HAEMORRHAGE [None]
